FAERS Safety Report 9031586 (Version 1)
Quarter: 2013Q1

REPORT INFORMATION
  Report Type: Spontaneous
  Country: FR (occurrence: FR)
  Receive Date: 20130124
  Receipt Date: 20130124
  Transmission Date: 20140127
  Serious: Yes (Hospitalization)
  Sender: FDA-Public Use
  Company Number: FR-UCBSA-076112

PATIENT
  Age: 40 Year
  Sex: Male

DRUGS (6)
  1. KEPPRA [Suspect]
     Route: 042
     Dates: start: 20121027, end: 20121121
  2. ACETAMINOPHEN\UNSPECIFIED INGREDIENT [Suspect]
     Route: 042
     Dates: start: 20121027, end: 20121121
  3. LASILIX [Suspect]
     Dosage: STRENGTH: 20 MG/2 ML
     Dates: start: 20121107, end: 20121112
  4. ERYTHROCINE [Concomitant]
     Dosage: STRENGTH: 1 G
     Route: 042
     Dates: start: 20121104, end: 20121112
  5. INEXIUM [Concomitant]
     Indication: PROPHYLAXIS
     Dosage: STRENGTH: 20 MG
     Route: 048
     Dates: start: 20121027, end: 20121129
  6. LEVOTHYROX [Concomitant]
     Dosage: STRENGTH: 50 MCG
     Dates: start: 20121027

REACTIONS (1)
  - Hepatocellular injury [Recovered/Resolved with Sequelae]
